FAERS Safety Report 14847263 (Version 1)
Quarter: 2018Q2

REPORT INFORMATION
  Report Type: Spontaneous
  Country: US (occurrence: US)
  Receive Date: 20180419
  Receipt Date: 20180419
  Transmission Date: 20180711
  Serious: No
  Sender: FDA-Public Use
  Company Number: None

PATIENT
  Age: 39 Year
  Sex: Male
  Weight: 85.5 kg

DRUGS (3)
  1. LIPITOR [Concomitant]
     Active Substance: ATORVASTATIN CALCIUM
  2. LEXAPRO [Concomitant]
     Active Substance: ESCITALOPRAM OXALATE
  3. METHYLPHENIDATE HYDROCHLORIDE XR 54MG [Suspect]
     Active Substance: METHYLPHENIDATE HYDROCHLORIDE
     Indication: ATTENTION DEFICIT/HYPERACTIVITY DISORDER
     Dosage: ?          QUANTITY:30 TABLET(S);?
     Route: 048
     Dates: start: 20180414

REACTIONS (6)
  - Anger [None]
  - Device issue [None]
  - Bruxism [None]
  - Product substitution issue [None]
  - Agitation [None]
  - Emotional disorder [None]

NARRATIVE: CASE EVENT DATE: 20180417
